FAERS Safety Report 21248767 (Version 3)
Quarter: 2023Q1

REPORT INFORMATION
  Report Type: Report from Study
  Country: NO (occurrence: NO)
  Receive Date: 20220824
  Receipt Date: 20230308
  Transmission Date: 20230418
  Serious: Yes (Hospitalization)
  Sender: FDA-Public Use
  Company Number: NO-SA-SAC20220818002157

PATIENT
  Sex: Female

DRUGS (8)
  1. ISATUXIMAB [Suspect]
     Active Substance: ISATUXIMAB
     Indication: Plasma cell myeloma
     Dosage: UNK
     Route: 065
     Dates: start: 20220713, end: 20220713
  2. ISATUXIMAB [Suspect]
     Active Substance: ISATUXIMAB
     Dosage: 10 MG/KG
     Route: 065
     Dates: start: 20220727, end: 20220727
  3. BORTEZOMIB [Suspect]
     Active Substance: BORTEZOMIB
     Indication: Plasma cell myeloma
     Dosage: 1.3 MG/M2 (DAY 1, 8, 15)
     Dates: start: 20220713, end: 20220713
  4. BORTEZOMIB [Suspect]
     Active Substance: BORTEZOMIB
     Dosage: 1.3 MG/M2
     Dates: start: 20220727, end: 20220727
  5. LENALIDOMIDE [Suspect]
     Active Substance: LENALIDOMIDE
     Indication: Plasma cell myeloma
     Dosage: 25 MG (DAY 1-21)
     Route: 048
     Dates: start: 20220713, end: 20220713
  6. LENALIDOMIDE [Suspect]
     Active Substance: LENALIDOMIDE
     Dosage: 25 MG
     Route: 048
     Dates: start: 20220802, end: 20220802
  7. DEXAMETHASONE [Suspect]
     Active Substance: DEXAMETHASONE
     Indication: Plasma cell myeloma
     Dosage: 20 MG (DAY 1,8,15, 22)
     Route: 048
     Dates: start: 20220713, end: 20220713
  8. DEXAMETHASONE [Suspect]
     Active Substance: DEXAMETHASONE
     Dosage: 10 MG/KG
     Dates: start: 20220803, end: 20220803

REACTIONS (2)
  - Non-cardiac chest pain [Recovered/Resolved]
  - Gout [Recovering/Resolving]

NARRATIVE: CASE EVENT DATE: 20220816
